FAERS Safety Report 5126803-6 (Version None)
Quarter: 2006Q4

REPORT INFORMATION
  Report Type: 
  Country: None (occurrence: None)
  Receive Date: 20061010
  Receipt Date: 20060926
  Transmission Date: 20070319
  Serious: Yes (Death)
  Sender: FDA-Public Use
  Company Number: 2006076863

PATIENT
  Age: 49 Year
  Sex: Female

DRUGS (8)
  1. NEURONTIN [Suspect]
     Indication: PAIN
  2. DIPHENHYDRAMINE (DIPHENHYDAMINE) [Suspect]
  3. DOXEPIN HCL [Suspect]
  4. METOCLOPRAMIDE [Suspect]
  5. MEPROBAMATE [Suspect]
  6. MIRTAZAPINE [Suspect]
  7. TOPIRAMATE [Concomitant]
  8. ETHANOL (ETHANOL) [Concomitant]

REACTIONS (5)
  - BLOOD ALCOHOL INCREASED [None]
  - COMPLETED SUICIDE [None]
  - DRUG INEFFECTIVE [None]
  - DRUG SCREEN POSITIVE [None]
  - GUN SHOT WOUND [None]
